FAERS Safety Report 8612793-8 (Version None)
Quarter: 2012Q3

REPORT INFORMATION
  Report Type: 
  Country: None (occurrence: None)
  Receive Date: 20120822
  Receipt Date: 20110916
  Transmission Date: 20120928
  Serious: No
  Sender: FDA-Public Use
  Company Number: US-ASTRAZENECA-2009SE11082

PATIENT
  Age: 51 Year
  Sex: Female
  Weight: 72.6 kg

DRUGS (6)
  1. NASONEX [Concomitant]
     Indication: MULTIPLE ALLERGIES
  2. CALCIUM CALTRATE [Concomitant]
  3. SYMBICORT [Suspect]
     Route: 055
  4. TRIMETRIN [Concomitant]
     Indication: HYPERTENSION
  5. SINGULAIR [Concomitant]
     Indication: ASTHMA
  6. ALBUTEROL [Concomitant]

REACTIONS (3)
  - DRUG DOSE OMISSION [None]
  - MALAISE [None]
  - DYSPHONIA [None]
